FAERS Safety Report 9324160 (Version 2)
Quarter: 2013Q2

REPORT INFORMATION
  Report Type: Spontaneous
  Country: US (occurrence: US)
  Receive Date: 20130603
  Receipt Date: 20130628
  Transmission Date: 20140414
  Serious: Yes (Congenital Anomaly, Other)
  Sender: FDA-Public Use
  Company Number: US-PFIZER INC-2013164432

PATIENT
  Sex: Male

DRUGS (26)
  1. ZOLOFT [Suspect]
     Dosage: UNK
     Route: 064
     Dates: start: 200203
  2. SERTRALINE HCL [Suspect]
     Dosage: UNK
     Route: 064
     Dates: start: 200203
  3. CELEXA [Concomitant]
     Dosage: UNK
     Route: 064
  4. MACROBID [Concomitant]
     Dosage: UNK
     Route: 064
  5. NAPROXEN [Concomitant]
     Dosage: UNK
     Route: 064
  6. SODIUM FLUORIDE 1.1% [Concomitant]
     Dosage: UNK
     Route: 064
  7. PAXIL [Concomitant]
     Dosage: UNK
     Route: 064
  8. ORTHO-NOVUM [Concomitant]
     Dosage: UNK
     Route: 064
  9. PYRIDIUM [Concomitant]
     Dosage: UNK
     Route: 064
  10. SUDAFED [Concomitant]
     Dosage: UNK
     Route: 064
  11. FLONASE [Concomitant]
     Dosage: UNK
     Route: 064
  12. IMODIUM [Concomitant]
     Dosage: UNK
     Route: 064
  13. TYLENOL [Concomitant]
     Dosage: UNK
     Route: 064
  14. PHENERGAN [Concomitant]
     Dosage: UNK
     Route: 064
  15. TYLENOL 3 [Concomitant]
     Dosage: UNK
     Route: 064
  16. SEPTRA DS [Concomitant]
     Dosage: UNK
     Route: 064
  17. COMPAZINE [Concomitant]
     Dosage: UNK
     Route: 064
  18. ZANTAC [Concomitant]
     Dosage: UNK
     Route: 064
  19. PERCOCET [Concomitant]
     Dosage: UNK
     Route: 064
  20. COLACE [Concomitant]
     Dosage: UNK
     Route: 064
  21. DEMEROL [Concomitant]
     Dosage: UNK
     Route: 064
  22. IRON [Concomitant]
     Dosage: UNK
     Route: 064
  23. BENADRYL [Concomitant]
     Dosage: UNK
     Route: 064
  24. MOTRIN [Concomitant]
     Dosage: UNK
     Route: 064
  25. AMBIEN [Concomitant]
     Dosage: UNK
     Route: 064
  26. PRENATAL VITAMINS [Concomitant]
     Dosage: UNK
     Route: 064

REACTIONS (6)
  - Maternal exposure during pregnancy [Unknown]
  - Intestinal malrotation [Unknown]
  - Respiratory tract malformation [Unknown]
  - Laryngomalacia [Unknown]
  - Micrognathia [Unknown]
  - Premature baby [Unknown]
